FAERS Safety Report 6701200-8 (Version None)
Quarter: 2010Q2

REPORT INFORMATION
  Report Type: 
  Country: None (occurrence: None)
  Receive Date: 20100428
  Receipt Date: 20100428
  Transmission Date: 20101027
  Serious: Yes (Hospitalization)
  Sender: FDA-Public Use
  Company Number: None

PATIENT
  Age: 59 Year
  Sex: Male
  Weight: 111.7 kg

DRUGS (1)
  1. RISPERIDONE [Suspect]
     Indication: DIABETES MELLITUS
     Dosage: 1 MG AT BEDTIME PO
     Route: 048
     Dates: start: 20011205, end: 20100413

REACTIONS (2)
  - HYPERGLYCAEMIA [None]
  - NAUSEA [None]
